FAERS Safety Report 7037565-X (Version None)
Quarter: 2010Q4

REPORT INFORMATION
  Report Type: 
  Country: None (occurrence: None)
  Receive Date: 20101011
  Receipt Date: 20101006
  Transmission Date: 20110411
  Serious: Yes (Death, Hospitalization)
  Sender: FDA-Public Use
  Company Number: IE-CELGENEUS-229-21880-10072650

PATIENT
  Sex: Male

DRUGS (3)
  1. REVLIMID [Suspect]
     Indication: MYELOFIBROSIS
     Route: 048
     Dates: start: 20100601, end: 20100721
  2. DELTACORTRIL [Concomitant]
     Indication: MYELOFIBROSIS
     Route: 048
     Dates: start: 20100501
  3. LYRICA [Concomitant]
     Indication: PAIN
     Route: 048

REACTIONS (1)
  - RENAL FAILURE [None]
